FAERS Safety Report 13856485 (Version 1)
Quarter: 2017Q3

REPORT INFORMATION
  Report Type: Spontaneous
  Country: US (occurrence: US)
  Receive Date: 20170810
  Receipt Date: 20170810
  Transmission Date: 20171127
  Serious: No
  Sender: FDA-Public Use
  Company Number: US-ROCHE-1322930

PATIENT
  Sex: Male

DRUGS (4)
  1. TAMIFLU [Suspect]
     Active Substance: OSELTAMIVIR PHOSPHATE
     Indication: INFLUENZA
     Dosage: 1 CAPSULE TWICE DAY FOR 5 DAYS
     Route: 065
  2. AUGMENTIN [Concomitant]
     Active Substance: AMOXICILLIN\CLAVULANATE POTASSIUM
     Route: 065
  3. CODEINE [Concomitant]
     Active Substance: CODEINE
     Indication: COUGH
     Dosage: 1 TABLESPOON EVERY 4 HOURS AS NEEDED.
     Route: 065
  4. GUAIFENESIN. [Concomitant]
     Active Substance: GUAIFENESIN
     Indication: COUGH
     Dosage: 1 TABLESPOON EVERY 4 HOURS AS NEEDED
     Route: 065

REACTIONS (2)
  - Dysgeusia [Unknown]
  - Anosmia [Unknown]
